FAERS Safety Report 15430063 (Version 1)
Quarter: 2018Q3

REPORT INFORMATION
  Report Type: Spontaneous
  Country: AU (occurrence: AU)
  Receive Date: 20180926
  Receipt Date: 20180926
  Transmission Date: 20181010
  Serious: Yes (Other)
  Sender: FDA-Public Use
  Company Number: AU-PFIZER INC-2018379343

PATIENT
  Age: 20 Year
  Sex: Male

DRUGS (3)
  1. QUETIAPINE FUMARATE. [Suspect]
     Active Substance: QUETIAPINE FUMARATE
     Dosage: 50 MG, AT NIGHT
  2. AMISULPRIDE [Suspect]
     Active Substance: AMISULPRIDE
     Dosage: 400 MG, 2X/DAY
  3. SERTRALINE HCL [Suspect]
     Active Substance: SERTRALINE HYDROCHLORIDE
     Dosage: 100 MG, IN THE MORNING

REACTIONS (1)
  - Electrocardiogram ST segment elevation [Unknown]
